FAERS Safety Report 14708574 (Version 1)
Quarter: 2018Q1

REPORT INFORMATION
  Report Type: Spontaneous
  Country: US (occurrence: US)
  Receive Date: 20180329
  Receipt Date: 20180329
  Transmission Date: 20180509
  Serious: No
  Sender: FDA-Public Use
  Company Number: None

PATIENT
  Age: 18 Year
  Sex: Female

DRUGS (1)
  1. METHYLPREDNISOLONE 1000MG FRESENIUS [Suspect]
     Active Substance: METHYLPREDNISOLONE
     Indication: CYSTIC FIBROSIS
     Route: 042
     Dates: start: 20170728, end: 20180328

REACTIONS (4)
  - Pharyngeal hypoaesthesia [None]
  - Hypoaesthesia [None]
  - Throat tightness [None]
  - Infusion related reaction [None]

NARRATIVE: CASE EVENT DATE: 20180326
